FAERS Safety Report 5175900-8 (Version None)
Quarter: 2006Q4

REPORT INFORMATION
  Report Type: 
  Country: None (occurrence: None)
  Receive Date: 20061215
  Receipt Date: 20061207
  Transmission Date: 20070319
  Serious: Yes (Congenital Anomaly)
  Sender: FDA-Public Use
  Company Number: BW-GLAXOSMITHKLINE-B0450429A

PATIENT
  Sex: Female
  Weight: 2.8 kg

DRUGS (3)
  1. EPIVIR [Suspect]
     Dosage: 300MG PER DAY
     Route: 048
     Dates: start: 20030919
  2. VIRAMUNE [Suspect]
     Dosage: 400MG PER DAY
     Route: 048
     Dates: start: 20031003
  3. ZERIT [Suspect]
     Dosage: 60MG PER DAY
     Route: 048
     Dates: start: 20030919

REACTIONS (2)
  - SKIN DISCOLOURATION [None]
  - UMBILICAL HERNIA [None]
